FAERS Safety Report 22223171 (Version 4)
Quarter: 2023Q2

REPORT INFORMATION
  Report Type: Spontaneous
  Country: GB (occurrence: GB)
  Receive Date: 20230418
  Receipt Date: 20230529
  Transmission Date: 20230721
  Serious: Yes (Other)
  Sender: FDA-Public Use
  Company Number: GB-ROCHE-3329170

PATIENT
  Age: 85 Year
  Sex: Female

DRUGS (2)
  1. VABYSMO [Suspect]
     Active Substance: FARICIMAB-SVOA
     Indication: Neovascular age-related macular degeneration
     Route: 050
     Dates: start: 20230307, end: 20230307
  2. VABYSMO [Suspect]
     Active Substance: FARICIMAB-SVOA
     Indication: Dry age-related macular degeneration

REACTIONS (4)
  - Iridocyclitis [Unknown]
  - Vitreous haemorrhage [Unknown]
  - Vitreous floaters [Unknown]
  - Uveitis [Unknown]

NARRATIVE: CASE EVENT DATE: 20230405
